FAERS Safety Report 6582374-9 (Version None)
Quarter: 2010Q1

REPORT INFORMATION
  Report Type: 
  Country: None (occurrence: None)
  Receive Date: 20100216
  Receipt Date: 20100122
  Transmission Date: 20100710
  Serious: Yes (Death, Hospitalization)
  Sender: FDA-Public Use
  Company Number: JP-BAYER-200915054BYL

PATIENT
  Age: 56 Year
  Sex: Male

DRUGS (8)
  1. NEXAVAR [Suspect]
     Indication: HEPATIC NEOPLASM MALIGNANT
     Dosage: TOTAL DAILY DOSE: 800 MG  UNIT DOSE: 200 MG
     Route: 048
     Dates: start: 20091201, end: 20100114
  2. HARNAL D [Concomitant]
     Dosage: TOTAL DAILY DOSE: 0.2 MG  UNIT DOSE: 0.2 MG
     Route: 048
  3. MAGMITT [Concomitant]
     Dosage: TOTAL DAILY DOSE: 750 MG  UNIT DOSE: 250 MG
     Route: 048
  4. LIVACT [Concomitant]
     Dosage: TOTAL DAILY DOSE: 12.45 G  UNIT DOSE: 4.15 G
     Route: 048
  5. ADALAT [Concomitant]
     Dosage: TOTAL DAILY DOSE: 10 MG  UNIT DOSE: 10 MG
     Route: 048
  6. GABAPEN [Concomitant]
     Dosage: TOTAL DAILY DOSE: 200 MG  UNIT DOSE: 200 MG
     Route: 048
  7. HYPEN [Concomitant]
     Dosage: TOTAL DAILY DOSE: 400 MG  UNIT DOSE: 200 MG
     Route: 048
  8. BONALON 35MG [Concomitant]
     Dosage: TOTAL DAILY DOSE: 35 MG  UNIT DOSE: 35 MG
     Route: 048

REACTIONS (3)
  - CEREBRAL HAEMORRHAGE [None]
  - HYPERTENSION [None]
  - RESPIRATORY FAILURE [None]
